FAERS Safety Report 4563095-0 (Version None)
Quarter: 2005Q1

REPORT INFORMATION
  Report Type: 
  Country: None (occurrence: None)
  Receive Date: 20050125
  Receipt Date: 20050112
  Transmission Date: 20050727
  Serious: Yes (Hospitalization)
  Sender: FDA-Public Use
  Company Number: 062-20785-05010142

PATIENT
  Age: 70 Year
  Sex: Male

DRUGS (2)
  1. THALIDOMIDE - PHARMION (THALDOMIDE) (50 MILLIGRAM, CAPSULES) [Suspect]
     Indication: PROSTATE CANCER
     Dosage: 300 DAILY, DAILY, ORAL
     Route: 048
     Dates: end: 20041201
  2. BETA BLOCKER (BETA BLOCKER) [Concomitant]

REACTIONS (2)
  - BRADYARRHYTHMIA [None]
  - CARDIAC PACEMAKER INSERTION [None]
